FAERS Safety Report 7084862-8 (Version None)
Quarter: 2010Q4

REPORT INFORMATION
  Report Type: 
  Country: None (occurrence: None)
  Receive Date: 20101103
  Receipt Date: 20101103
  Transmission Date: 20110411
  Serious: No
  Sender: FDA-Public Use
  Company Number: None

PATIENT
  Age: 43 Year
  Sex: Male

DRUGS (1)
  1. OXYCODONE UNKNOWN UNKNOWN [Suspect]
     Dosage: 10MG EVERY 6 HOURS PO
     Route: 048
     Dates: start: 20100919, end: 20100919

REACTIONS (5)
  - MIOSIS [None]
  - OXYGEN SATURATION DECREASED [None]
  - RESPIRATORY DEPRESSION [None]
  - SNORING [None]
  - UNRESPONSIVE TO STIMULI [None]
